FAERS Safety Report 14806820 (Version 1)
Quarter: 2018Q2

REPORT INFORMATION
  Report Type: Spontaneous
  Country: US (occurrence: US)
  Receive Date: 20180425
  Receipt Date: 20180425
  Transmission Date: 20180711
  Serious: No
  Sender: FDA-Public Use
  Company Number: US-ROCHE-2077024

PATIENT
  Age: 50 Year
  Sex: Female
  Weight: 59.02 kg

DRUGS (2)
  1. OCREVUS [Suspect]
     Active Substance: OCRELIZUMAB
     Indication: MULTIPLE SCLEROSIS
     Dosage: 600MG SPLIT IN HALF FOR 300MG AT EACH INFUSION;ONGOING: YES
     Route: 042
     Dates: start: 20180119
  2. OCREVUS [Suspect]
     Active Substance: OCRELIZUMAB
     Dosage: MAYBE 600MG SPLIT IN HALF FOR 300MG EACH TIME
     Route: 042
     Dates: start: 20180202

REACTIONS (1)
  - Nausea [Not Recovered/Not Resolved]

NARRATIVE: CASE EVENT DATE: 20180214
